FAERS Safety Report 5028455-2 (Version None)
Quarter: 2006Q2

REPORT INFORMATION
  Report Type: 
  Country: None (occurrence: None)
  Receive Date: 20060617
  Receipt Date: 20060614
  Transmission Date: 20061013
  Serious: Yes (Other)
  Sender: FDA-Public Use
  Company Number: CA-GLAXOSMITHKLINE-A0609179A

PATIENT
  Sex: Female

DRUGS (4)
  1. ZANTAC [Suspect]
     Indication: DRUG USE FOR UNKNOWN INDICATION
     Dosage: 75MG AS REQUIRED
     Route: 048
  2. CETIRIZINE [Concomitant]
  3. OMEPRAZOLE [Concomitant]
  4. YASMIN [Concomitant]

REACTIONS (1)
  - WEIGHT DECREASED [None]
